FAERS Safety Report 9863132 (Version 4)
Quarter: 2014Q1

REPORT INFORMATION
  Report Type: Spontaneous
  Country: DE (occurrence: DE)
  Receive Date: 20140203
  Receipt Date: 20140318
  Transmission Date: 20141002
  Serious: Yes (Death, Hospitalization, Other)
  Sender: FDA-Public Use
  Company Number: DE-ELI_LILLY_AND_COMPANY-DE201401009005

PATIENT
  Age: 77 Year
  Sex: Male

DRUGS (21)
  1. CYMBALTA [Suspect]
     Indication: DEPRESSION
     Dosage: 30 MG, QD
     Route: 048
     Dates: start: 20130626
  2. CYMBALTA [Interacting]
     Dosage: 30 MG, BID
     Route: 048
     Dates: start: 20130627
  3. CYMBALTA [Interacting]
     Dosage: 90 MG ( 60 MG IN THE MORNING AND 30 MG IN THE MORNING)
     Route: 048
     Dates: start: 20130704
  4. CYMBALTA [Interacting]
     Dosage: 30 MG, QD
     Route: 048
     Dates: start: 20130720, end: 20130722
  5. CORDAREX /00133102/ [Interacting]
     Indication: PRODUCT USED FOR UNKNOWN INDICATION
     Dosage: 200 MG, QD
     Route: 065
  6. FALITHROM [Interacting]
     Indication: PRODUCT USED FOR UNKNOWN INDICATION
     Dosage: UNK, UNKNOWN
     Route: 048
  7. ASS [Concomitant]
     Indication: CORONARY ARTERY DISEASE
     Dosage: 100 MG, QD
     Route: 065
  8. ASS [Concomitant]
     Indication: STENT PLACEMENT
  9. CONCOR [Concomitant]
     Indication: PRODUCT USED FOR UNKNOWN INDICATION
     Dosage: 3.75 MG, QD: 2.5MG+0+1.25MG
     Route: 065
  10. ENALAPRIL [Concomitant]
     Indication: PRODUCT USED FOR UNKNOWN INDICATION
     Dosage: 10 MG, QD
     Route: 065
  11. PANTOZOL                           /01263204/ [Concomitant]
     Indication: PRODUCT USED FOR UNKNOWN INDICATION
     Dosage: 40 MG, EACH EVENING
     Route: 065
  12. SIMVASTATIN [Concomitant]
     Indication: PRODUCT USED FOR UNKNOWN INDICATION
     Dosage: 20 MG, EACH EVENING
     Route: 065
  13. DIGITOXIN [Concomitant]
     Indication: PRODUCT USED FOR UNKNOWN INDICATION
     Dosage: 0.7 MG, EACH MORNING
     Route: 065
  14. FERROSANOL [Concomitant]
     Indication: PRODUCT USED FOR UNKNOWN INDICATION
     Dosage: 100 MG, QD
     Route: 065
  15. ALLOPURINOL [Concomitant]
     Indication: PRODUCT USED FOR UNKNOWN INDICATION
     Dosage: 150 MG, EACH MORNING
     Route: 065
  16. TOREM                              /01036501/ [Concomitant]
     Indication: PRODUCT USED FOR UNKNOWN INDICATION
     Dosage: 15 MG, QD: 10MG+0+5MG
     Route: 065
  17. HUMALOG [Concomitant]
     Indication: PRODUCT USED FOR UNKNOWN INDICATION
     Dosage: 30 DF, QD: 12+8+10
     Route: 058
  18. HUMULIN R [Concomitant]
     Indication: PRODUCT USED FOR UNKNOWN INDICATION
     Dosage: 8 DF, EACH EVENING
     Route: 058
  19. CEFTRIAXON [Concomitant]
     Indication: PRODUCT USED FOR UNKNOWN INDICATION
     Dosage: UNK, UNKNOWN
     Route: 065
     Dates: start: 20130717
  20. CEFPODOXIM 1 A PHARMA [Concomitant]
     Indication: PRODUCT USED FOR UNKNOWN INDICATION
     Dosage: 400 MG, QD: 200MG+0+200MG
     Route: 065
     Dates: start: 20130720
  21. HEPARIN [Concomitant]
     Indication: PRODUCT USED FOR UNKNOWN INDICATION
     Dosage: 12000 DF, BID
     Route: 065

REACTIONS (11)
  - Death [Fatal]
  - Cholelithiasis [Unknown]
  - Hepatic steatosis [Unknown]
  - Vascular encephalopathy [Unknown]
  - Jaundice [Unknown]
  - Liver disorder [Unknown]
  - Streptococcal urinary tract infection [Unknown]
  - Toxicity to various agents [Unknown]
  - Potentiating drug interaction [Unknown]
  - Potentiating drug interaction [Unknown]
  - Epistaxis [Unknown]
